FAERS Safety Report 19179348 (Version 1)
Quarter: 2021Q2

REPORT INFORMATION
  Report Type: Spontaneous
  Country: US (occurrence: US)
  Receive Date: 20210423
  Receipt Date: 20210423
  Transmission Date: 20210717
  Serious: Yes (Hospitalization)
  Sender: FDA-Public Use
  Company Number: None

PATIENT
  Age: 50 Year
  Sex: Female

DRUGS (1)
  1. NUCALA [Suspect]
     Active Substance: MEPOLIZUMAB
     Indication: ASTHMA
     Route: 058
     Dates: start: 202009

REACTIONS (4)
  - Dyspnoea [None]
  - Blood pressure increased [None]
  - Chest pain [None]
  - Blood potassium decreased [None]

NARRATIVE: CASE EVENT DATE: 20210411
